FAERS Safety Report 8869896 (Version 1)
Quarter: 2012Q4

REPORT INFORMATION
  Report Type: 
  Country: US (occurrence: US)
  Receive Date: 20121026
  Receipt Date: 20121026
  Transmission Date: 20130627
  Serious: No
  Sender: FDA-Public Use
  Company Number: US-AMGEN-USASP2012045884

PATIENT
  Sex: Female
  Weight: 63.49 kg

DRUGS (8)
  1. ENBREL [Suspect]
     Indication: PSORIATIC ARTHROPATHY
     Dosage: 50 mg, q2wk
     Route: 058
     Dates: start: 20110729, end: 20120612
  2. CLOBEX                             /00012002/ [Concomitant]
  3. HALOBETASOL PROP [Concomitant]
  4. DESONATE [Concomitant]
  5. LAMOTRIGINE [Concomitant]
  6. NEXIUM                             /01479302/ [Concomitant]
  7. OLUX E [Concomitant]
  8. PRISTIQ [Concomitant]

REACTIONS (1)
  - Drug ineffective [Unknown]
